FAERS Safety Report 19138614 (Version 1)
Quarter: 2021Q2

REPORT INFORMATION
  Report Type: Spontaneous
  Country: US (occurrence: US)
  Receive Date: 20210415
  Receipt Date: 20210415
  Transmission Date: 20210717
  Serious: No
  Sender: FDA-Public Use
  Company Number: NVSC2021US076369

PATIENT
  Sex: Male

DRUGS (1)
  1. XIIDRA [Suspect]
     Active Substance: LIFITEGRAST
     Indication: MACULAR DEGENERATION
     Dosage: 5 %, BID
     Route: 065

REACTIONS (4)
  - Eye irritation [Unknown]
  - Eye pain [Unknown]
  - Product use in unapproved indication [Unknown]
  - Vision blurred [Unknown]
